FAERS Safety Report 9474155 (Version 1)
Quarter: 2013Q3

REPORT INFORMATION
  Report Type: Spontaneous
  Country: US (occurrence: None)
  Receive Date: 20130820
  Receipt Date: 20130820
  Transmission Date: 20140515
  Serious: Yes (Hospitalization, Other)
  Sender: FDA-Public Use
  Company Number: AUR-APL-2013-06621

PATIENT
  Age: 54 Year
  Sex: Male

DRUGS (3)
  1. RIBAVIRIN (RIBAVIRIN) [Suspect]
     Indication: HEPATITIS C
     Dosage: (500 MG 2 IN 1 D), UNKNOWN
  2. PEGINTERFERON ALFA-2A [Suspect]
     Dosage: (180 MCG, 1 WK)
     Route: 058
  3. TELAPREVIR (TELAPREVIR) [Suspect]
     Indication: HEPATITIS C
     Dosage: 750MG, 1 IN 8 HR), UNKNOWN

REACTIONS (3)
  - Abdominal pain [None]
  - Food poisoning [None]
  - Dehydration [None]
